FAERS Safety Report 15256197 (Version 1)
Quarter: 2018Q3

REPORT INFORMATION
  Report Type: Spontaneous
  Country: US (occurrence: US)
  Receive Date: 20180808
  Receipt Date: 20180808
  Transmission Date: 20181010
  Serious: No
  Sender: FDA-Public Use
  Company Number: US-GLAXOSMITHKLINE-US2018GSK140412

PATIENT
  Sex: Female

DRUGS (1)
  1. WELLBUTRIN SR [Suspect]
     Active Substance: BUPROPION HYDROCHLORIDE

REACTIONS (8)
  - Migraine [Unknown]
  - Nausea [Unknown]
  - Asthma [Unknown]
  - Appetite disorder [Unknown]
  - Illogical thinking [Unknown]
  - Loss of employment [Unknown]
  - Dizziness [Unknown]
  - Peripheral swelling [Unknown]
